FAERS Safety Report 5806355-5 (Version None)
Quarter: 2008Q3

REPORT INFORMATION
  Report Type: 
  Country: None (occurrence: None)
  Receive Date: 20080710
  Receipt Date: 20080630
  Transmission Date: 20090109
  Serious: Yes (Other)
  Sender: FDA-Public Use
  Company Number: US-ROCHE-574216

PATIENT
  Age: 26 Year
  Sex: Female

DRUGS (2)
  1. INTERFERON ALFA [Suspect]
     Indication: MALIGNANT MELANOMA
     Route: 065
  2. INTERFERON ALFA [Suspect]
     Route: 065

REACTIONS (2)
  - HYPOTHYROIDISM [None]
  - PITUITARY ENLARGEMENT [None]
